FAERS Safety Report 6120021-0 (Version None)
Quarter: 2009Q1

REPORT INFORMATION
  Report Type: 
  Country: None (occurrence: None)
  Receive Date: 20090316
  Receipt Date: 20090309
  Transmission Date: 20090719
  Serious: Yes (Hospitalization, Other)
  Sender: FDA-Public Use
  Company Number: AU-ROXANE LABORATORIES, INC.-2009-RO-00221RO

PATIENT
  Age: 55 Year
  Sex: Male

DRUGS (24)
  1. PREDNISONE [Suspect]
     Indication: SKIN ULCER
     Dosage: 50MG
  2. PREDNISONE [Suspect]
     Dosage: 12.5MG
  3. PREDNISONE [Suspect]
     Dosage: 100MG
  4. PREDNISONE [Suspect]
     Dosage: 15MG
  5. PREDNISONE [Suspect]
     Dosage: 35MG
  6. PREDNISONE [Suspect]
     Dosage: 10MG
  7. PREDNISONE [Suspect]
     Dosage: 2MG
  8. HYDROXYUREA [Suspect]
     Indication: CHRONIC MYELOID LEUKAEMIA
  9. AZATHIOPRINE [Suspect]
     Dosage: 100MG
  10. MYCOPHENOLATE MOFETIL [Suspect]
     Dosage: 2G
  11. IMATINIB MESYLATE [Suspect]
     Indication: CHRONIC MYELOID LEUKAEMIA
  12. FLUCLOXACILLIN [Suspect]
     Indication: ANTIBIOTIC THERAPY
  13. CEFEPIME [Suspect]
     Indication: ANTIBIOTIC THERAPY
  14. TOBRAMYCIN [Suspect]
     Indication: ANTIBIOTIC THERAPY
  15. VANCOMYCIN [Suspect]
     Indication: ANTIBIOTIC THERAPY
  16. HYPOGLYCEMICS [Suspect]
     Indication: DIABETES MELLITUS
     Route: 048
  17. MINOCYCLINE HCL [Suspect]
     Dosage: 200MG
  18. DAPSONE [Suspect]
     Dosage: 50MG
  19. POTASSIUM IODIDE [Suspect]
     Dosage: 300MG
  20. CYCLOSPORINE [Suspect]
     Dosage: 300MG
  21. INSULIN [Suspect]
     Indication: DIABETES MELLITUS
  22. FLUCONAZOLE [Concomitant]
     Indication: PROPHYLAXIS
  23. OCTAGAM [Concomitant]
     Indication: PYODERMA GANGRENOSUM
     Dosage: 30G
     Route: 042
  24. OCTAGAM [Concomitant]
     Route: 042

REACTIONS (10)
  - CUSHINGOID [None]
  - DIABETES MELLITUS [None]
  - HYPERLIPIDAEMIA [None]
  - HYPERTENSION [None]
  - MENINGITIS CRYPTOCOCCAL [None]
  - OSTEOPENIA [None]
  - PYODERMA GANGRENOSUM [None]
  - RENAL IMPAIRMENT [None]
  - RIB FRACTURE [None]
  - SEPSIS [None]
